FAERS Safety Report 5167760-6 (Version None)
Quarter: 2006Q4

REPORT INFORMATION
  Report Type: 
  Country: None (occurrence: None)
  Receive Date: 20061204
  Receipt Date: 20061204
  Transmission Date: 20070319
  Serious: No
  Sender: FDA-Public Use
  Company Number: None

PATIENT
  Age: 59 Year
  Sex: Male
  Weight: 99.7913 kg

DRUGS (1)
  1. PROMETHAZINE [Suspect]
     Dosage: TIMES 4 DOSES IV
     Route: 042
     Dates: start: 20061017, end: 20061018

REACTIONS (4)
  - PAIN [None]
  - PALLOR [None]
  - PERIPHERAL COLDNESS [None]
  - VENOUS OCCLUSION [None]
